FAERS Safety Report 19930873 (Version 1)
Quarter: 2021Q4

REPORT INFORMATION
  Report Type: Report from Study
  Country: IN (occurrence: IN)
  Receive Date: 20211008
  Receipt Date: 20211008
  Transmission Date: 20220303
  Serious: Yes (Other)
  Sender: FDA-Public Use
  Company Number: IN-BRISTOL-MYERS SQUIBB COMPANY-BMS-2021-059351

PATIENT
  Age: 66 Year
  Sex: Male
  Weight: 57.8 kg

DRUGS (1)
  1. NIVOLUMAB [Suspect]
     Active Substance: NIVOLUMAB
     Indication: Squamous cell carcinoma of head and neck
     Dosage: 174 MILLIGRAM, Q2WK
     Route: 042
     Dates: start: 20210522

REACTIONS (4)
  - Spinal compression fracture [Unknown]
  - Appetite disorder [Unknown]
  - Dry skin [Unknown]
  - Abdominal pain upper [Unknown]
